FAERS Safety Report 5282249-1 (Version None)
Quarter: 2007Q1

REPORT INFORMATION
  Report Type: 
  Country: None (occurrence: None)
  Receive Date: 20070330
  Receipt Date: 20070320
  Transmission Date: 20070707
  Serious: Yes (Other)
  Sender: FDA-Public Use
  Company Number: JP-PFIZER INC-2007022592

PATIENT
  Age: 80 Year
  Sex: Female

DRUGS (2)
  1. SULPERAZON [Suspect]
     Dosage: DAILY DOSE:2GRAM
     Route: 042
     Dates: start: 20070216, end: 20070220
  2. ALEVIATIN [Suspect]

REACTIONS (1)
  - AGRANULOCYTOSIS [None]
